FAERS Safety Report 11242562 (Version 2)
Quarter: 2017Q3

REPORT INFORMATION
  Report Type: Spontaneous
  Country: GB (occurrence: GB)
  Receive Date: 20150702
  Receipt Date: 20170920
  Transmission Date: 20171127
  Serious: Yes (Hospitalization)
  Sender: FDA-Public Use
  Company Number: GB-LHC-2015078

PATIENT
  Age: 12 Year
  Sex: Female
  Weight: 50 kg

DRUGS (2)
  1. NITROUS OXIDE (GENERIC) [Suspect]
     Active Substance: NITROUS OXIDE
     Indication: GENERAL ANAESTHESIA
     Dates: start: 20150128, end: 20150128
  2. OXYGEN (GENERIC) [Concomitant]
     Active Substance: OXYGEN

REACTIONS (11)
  - Somnolence [Recovered/Resolved with Sequelae]
  - Leukoencephalopathy [Recovered/Resolved with Sequelae]
  - Muscular weakness [Recovered/Resolved with Sequelae]
  - Agitation [Recovered/Resolved with Sequelae]
  - Disinhibition [Recovered/Resolved with Sequelae]
  - Drug interaction [Recovered/Resolved with Sequelae]
  - Neurotoxicity [Recovered/Resolved with Sequelae]
  - Neurological symptom [Recovered/Resolved with Sequelae]
  - Partial seizures with secondary generalisation [Recovered/Resolved with Sequelae]
  - Brain oedema [Recovered/Resolved with Sequelae]
  - Vitamin B12 decreased [Recovered/Resolved]

NARRATIVE: CASE EVENT DATE: 20150201
